FAERS Safety Report 10452532 (Version 1)
Quarter: 2014Q3

REPORT INFORMATION
  Report Type: Spontaneous
  Country: US (occurrence: None)
  Receive Date: 20140911
  Receipt Date: 20140911
  Transmission Date: 20150326
  Serious: Yes (Death, Hospitalization, Other)
  Sender: FDA-Public Use
  Company Number: PR-AE14-000771

PATIENT
  Age: 57 Year
  Sex: Male
  Weight: 52 kg

DRUGS (3)
  1. BC [Suspect]
     Active Substance: ASPIRIN\CAFFEINE
     Indication: CROHN^S DISEASE
     Dosage: 10-12 POWDERS/DAY, ORAL
     Route: 048
     Dates: end: 201401
  2. CIMZIA [Suspect]
     Active Substance: CERTOLIZUMAB PEGOL
     Indication: ANALGESIC THERAPY
     Dosage: 400 MG, Q4WKS, INJECTION
     Dates: start: 20101220, end: 20140424
  3. TYLENOL [Concomitant]
     Active Substance: ACETAMINOPHEN

REACTIONS (13)
  - Loss of consciousness [None]
  - Ulcer [None]
  - Lymphoma [None]
  - Incorrect dose administered [None]
  - Hepatic cancer [None]
  - Upper gastrointestinal haemorrhage [None]
  - Haematocrit decreased [None]
  - Hepatic enzyme increased [None]
  - General physical health deterioration [None]
  - Lower gastrointestinal haemorrhage [None]
  - Haemoglobin decreased [None]
  - Weight decreased [None]
  - Bone cancer [None]

NARRATIVE: CASE EVENT DATE: 201401
